FAERS Safety Report 4959261-2 (Version None)
Quarter: 2006Q1

REPORT INFORMATION
  Report Type: 
  Country: None (occurrence: None)
  Receive Date: 20060331
  Receipt Date: 20060329
  Transmission Date: 20060701
  Serious: Yes (Death, Hospitalization)
  Sender: FDA-Public Use
  Company Number: NL-SANOFI-SYNTHELABO-F01200600918

PATIENT
  Sex: Male

DRUGS (4)
  1. OXALIPLATIN [Suspect]
     Indication: COLORECTAL CANCER
     Route: 041
     Dates: start: 20060309, end: 20060309
  2. CAPECITABINE [Suspect]
     Indication: COLORECTAL CANCER
     Dosage: DAYS 1-14 (1250 MG/M2 AFTER CYCLE 6)
     Route: 048
     Dates: start: 20060309
  3. BEVACIZUMAB [Suspect]
     Indication: COLORECTAL CANCER
     Route: 041
     Dates: start: 20060309
  4. CETUXIMAB [Suspect]
     Indication: COLORECTAL CANCER
     Dosage: 400 MG/M2 DAY 1 OF CYCLE 1, THEREAFTER 250 MG/M2 WEEKLY
     Route: 041
     Dates: start: 20060309

REACTIONS (1)
  - CARDIAC FAILURE [None]
